FAERS Safety Report 4765378-8 (Version None)
Quarter: 2005Q3

REPORT INFORMATION
  Report Type: 
  Country: None (occurrence: None)
  Receive Date: 20050906
  Receipt Date: 20050822
  Transmission Date: 20060218
  Serious: Yes (Death, Hospitalization, Other)
  Sender: FDA-Public Use
  Company Number: FR-2005-017788

PATIENT
  Age: 78 Year
  Sex: Male

DRUGS (13)
  1. SOTALOL HCL [Suspect]
     Dosage: 80 MG, 1X/DAY, ORAL
     Route: 048
     Dates: end: 20030806
  2. CELOCURIN (SUXAMETHONIUM CHLORIDE) [Suspect]
     Dates: start: 20030806, end: 20030806
  3. HYPNOMIDATE [Suspect]
     Dates: start: 20030806, end: 20030806
  4. DIPRIVAN [Suspect]
     Dosage: 15-25-35-40-50, UNK
     Dates: start: 20030806, end: 20030806
  5. SUFENTA [Suspect]
     Dosage: 5 0 0 0 0, UNK
     Dates: start: 20030806, end: 20030806
  6. EPHEDRINE (EPHEDRINE) [Suspect]
     Dates: start: 20030806, end: 20030806
  7. NIMBEX [Suspect]
     Dates: start: 20030806, end: 20030806
  8. AMLODIPINE BESYLATE [Concomitant]
  9. GLUCOPHAGE [Concomitant]
  10. DAONIL (GLIBENCLAMIDE) [Concomitant]
  11. ALLOPURINOL [Concomitant]
  12. ZOCOR [Concomitant]
  13. LASILIX [Concomitant]

REACTIONS (12)
  - ATRIAL FIBRILLATION [None]
  - ATRIOVENTRICULAR BLOCK FIRST DEGREE [None]
  - BLOOD PRESSURE DECREASED [None]
  - BLOOD PRESSURE DIASTOLIC INCREASED [None]
  - CARDIAC ARREST [None]
  - CHOLANGITIS [None]
  - CHOLELITHIASIS [None]
  - ELECTROCARDIOGRAM PR PROLONGATION [None]
  - ELECTROMECHANICAL DISSOCIATION [None]
  - SEPTIC SHOCK [None]
  - VENTRICULAR EXTRASYSTOLES [None]
  - VENTRICULAR TACHYCARDIA [None]
